FAERS Safety Report 22888478 (Version 5)
Quarter: 2025Q1

REPORT INFORMATION
  Report Type: Spontaneous
  Country: DO (occurrence: DO)
  Receive Date: 20230831
  Receipt Date: 20250311
  Transmission Date: 20250409
  Serious: Yes (Hospitalization, Other)
  Sender: SANDOZ
  Company Number: DO-002147023-NVSC2020DO310478

PATIENT
  Sex: Female
  Weight: 81.633 kg

DRUGS (9)
  1. METHOTREXATE [Suspect]
     Active Substance: METHOTREXATE
     Indication: Product used for unknown indication
     Route: 065
  2. SECUKINUMAB [Suspect]
     Active Substance: SECUKINUMAB
     Dosage: 1 DOSAGE FORM, QMO
     Route: 065
  3. SECUKINUMAB [Suspect]
     Active Substance: SECUKINUMAB
     Dosage: 150 MG, QMO
     Route: 058
  4. SECUKINUMAB [Suspect]
     Active Substance: SECUKINUMAB
     Indication: Ankylosing spondylitis
     Dosage: 150 MG, QMO (START DATE: ??-???-2019)
     Route: 058
  5. SECUKINUMAB [Suspect]
     Active Substance: SECUKINUMAB
     Dosage: 150 MG, QMO START DATE: 02-SEP-2020
     Route: 058
     Dates: end: 20221005
  6. SECUKINUMAB [Suspect]
     Active Substance: SECUKINUMAB
     Dosage: 150 MG, QMO(START DATE:16-FEB-2021)
     Route: 058
  7. SECUKINUMAB [Suspect]
     Active Substance: SECUKINUMAB
     Dosage: 300 MG, QMO
     Route: 058
  8. SECUKINUMAB [Suspect]
     Active Substance: SECUKINUMAB
     Dosage: 300 MG, QMO
     Route: 058
  9. LEVOTHYROXINE SODIUM [Concomitant]
     Active Substance: LEVOTHYROXINE SODIUM
     Indication: Thyroid disorder
     Route: 065

REACTIONS (41)
  - Feeling abnormal [Unknown]
  - Facial paralysis [Unknown]
  - Bone pain [Unknown]
  - Pyrexia [Unknown]
  - Spinal fracture [Unknown]
  - Spinal pain [Recovering/Resolving]
  - Cataract [Unknown]
  - Ankylosing spondylitis [Unknown]
  - Hypokinesia [Unknown]
  - Joint swelling [Not Recovered/Not Resolved]
  - Cerebrovascular accident [Recovered/Resolved]
  - Thrombosis [Not Recovered/Not Resolved]
  - Pain in extremity [Unknown]
  - Memory impairment [Not Recovered/Not Resolved]
  - Fatigue [Not Recovered/Not Resolved]
  - Malaise [Unknown]
  - Feeding disorder [Unknown]
  - Glossodynia [Unknown]
  - Full blood count increased [Unknown]
  - White blood cell count increased [Unknown]
  - Cerebral disorder [Unknown]
  - Neck pain [Unknown]
  - Ligament sprain [Unknown]
  - Gastritis [Not Recovered/Not Resolved]
  - Blood triglycerides increased [Unknown]
  - Swelling face [Unknown]
  - Intervertebral disc protrusion [Unknown]
  - Insomnia [Unknown]
  - Nasopharyngitis [Unknown]
  - Discomfort [Unknown]
  - Inflammation [Recovering/Resolving]
  - Ill-defined disorder [Unknown]
  - Dizziness [Unknown]
  - Epigastric discomfort [Unknown]
  - Gait disturbance [Recovering/Resolving]
  - Head discomfort [Unknown]
  - Pain [Not Recovered/Not Resolved]
  - Osteoporosis [Unknown]
  - Headache [Not Recovered/Not Resolved]
  - Arthralgia [Not Recovered/Not Resolved]
  - Drug ineffective [Unknown]

NARRATIVE: CASE EVENT DATE: 20190101
